FAERS Safety Report 7808542-3 (Version None)
Quarter: 2011Q4

REPORT INFORMATION
  Report Type: 
  Country: None (occurrence: None)
  Receive Date: 20111012
  Receipt Date: 20111005
  Transmission Date: 20120403
  Serious: No
  Sender: FDA-Public Use
  Company Number: US-B.I. PHARMACEUTICALS,INC./RIDGEFIELD-2011-BP-19033BP

PATIENT
  Sex: Female

DRUGS (11)
  1. AMIODARONE HCL [Suspect]
     Dosage: 100 MG
     Dates: start: 20110627, end: 20110829
  2. AMLODIPINE [Concomitant]
  3. VITAMIN TAB [Concomitant]
     Indication: SUPPLEMENTATION THERAPY
  4. ZOPENEX [Concomitant]
  5. ZOPENEX [Concomitant]
  6. AMIODARONE HCL [Suspect]
     Indication: ATRIAL FIBRILLATION
     Dosage: 200 MG
     Dates: start: 20110316
  7. SYNTHROID [Concomitant]
     Indication: HYPOTHYROIDISM
  8. PRADAXA [Suspect]
     Indication: ATRIAL FIBRILLATION
     Dosage: 300 MG
     Route: 048
     Dates: start: 20101201
  9. BENADRYL [Concomitant]
  10. CALCIUM CARBONATE [Concomitant]
     Indication: SUPPLEMENTATION THERAPY
  11. ATIVAN [Concomitant]

REACTIONS (5)
  - FLATULENCE [None]
  - CHILLS [None]
  - CHEST DISCOMFORT [None]
  - ABDOMINAL DISTENSION [None]
  - CONSTIPATION [None]
